FAERS Safety Report 17665117 (Version 1)
Quarter: 2020Q2

REPORT INFORMATION
  Report Type: Spontaneous
  Country: CH (occurrence: CH)
  Receive Date: 20200414
  Receipt Date: 20200414
  Transmission Date: 20200713
  Serious: Yes (Hospitalization, Other)
  Sender: FDA-Public Use
  Company Number: CH-PFIZER INC-2020149165

PATIENT
  Age: 73 Year
  Sex: Male
  Weight: 89 kg

DRUGS (11)
  1. PIPERACILLIN/TAZOBACTAM [Suspect]
     Active Substance: PIPERACILLIN SODIUM\TAZOBACTAM SODIUM
     Indication: UROSEPSIS
     Dosage: 4.5 G, UNK (IN TOTAL)
     Route: 042
     Dates: start: 20200321, end: 20200321
  2. LEVETIRACETAM. [Concomitant]
     Active Substance: LEVETIRACETAM
     Dosage: 2.5 G, DAILY (8 A.M: 1 G, 2 P.M: 500 MG, 8 P.M: 1 G)
     Route: 048
     Dates: start: 20200131
  3. CORDARONE [Concomitant]
     Active Substance: AMIODARONE HYDROCHLORIDE
     Dosage: UNK UNK, 1X/DAY (0-1-0-0)
     Route: 048
     Dates: start: 20160101
  4. ATORVASTATIN [Concomitant]
     Active Substance: ATORVASTATIN
     Dosage: 20 MG, 1X/DAY (1-0-0-0)
     Route: 048
     Dates: start: 20160101, end: 20200325
  5. DAFALGAN [Suspect]
     Active Substance: ACETAMINOPHEN
     Dosage: 1 G, 4X/DAY (1-1-1-1)
     Route: 048
     Dates: start: 20200321, end: 20200324
  6. VIMPAT [Concomitant]
     Active Substance: LACOSAMIDE
     Dosage: 40 MG, DAILY (20 MG AT 8 AM AND  8 PM)
     Route: 048
     Dates: start: 20200131
  7. XARELTO [Concomitant]
     Active Substance: RIVAROXABAN
     Dosage: 20 MG, 1X/DAY (1-0-0-0)
     Route: 048
     Dates: start: 20160101, end: 20200224
  8. QUETIAPINE. [Concomitant]
     Active Substance: QUETIAPINE
     Dosage: 25 MG: 0.5 TBL AT 8 P.M. + IN RESERVE
     Route: 048
     Dates: start: 20200224
  9. FRAGMIN [Suspect]
     Active Substance: DALTEPARIN SODIUM
     Dosage: 5000 IU, 1X/DAY
     Route: 058
     Dates: start: 20200321
  10. CO-AMOXI [Suspect]
     Active Substance: AMOXICILLIN\CLAVULANATE POTASSIUM
     Indication: UROSEPSIS
     Dosage: 2.2 G, 3X/DAY (EVERY 8H)
     Route: 042
     Dates: start: 20200322, end: 20200327
  11. TOPAMAX [Concomitant]
     Active Substance: TOPIRAMATE
     Dosage: 50 MG, UNK AT 9 A.M. AND 8 P.M.
     Route: 048
     Dates: start: 20200131

REACTIONS (3)
  - Hepatitis cholestatic [Recovering/Resolving]
  - Nausea [Unknown]
  - Decreased appetite [Unknown]

NARRATIVE: CASE EVENT DATE: 20200323
